FAERS Safety Report 5203464-9 (Version None)
Quarter: 2007Q1

REPORT INFORMATION
  Report Type: 
  Country: None (occurrence: None)
  Receive Date: 20070110
  Receipt Date: 20070102
  Transmission Date: 20070707
  Serious: Yes (Hospitalization)
  Sender: FDA-Public Use
  Company Number: BR-BRISTOL-MYERS SQUIBB COMPANY-13629159

PATIENT
  Age: 65 Year
  Sex: Female

DRUGS (4)
  1. ABATACEPT [Suspect]
     Indication: RHEUMATOID ARTHRITIS
     Route: 042
     Dates: start: 20030514
  2. METHOTREXATE [Concomitant]
     Dates: start: 20030518, end: 20061230
  3. PREDNISONE TAB [Concomitant]
     Dates: start: 20060814, end: 20061230
  4. MELOXICAM [Concomitant]
     Dates: start: 20060126, end: 20061230

REACTIONS (3)
  - CARDIAC FAILURE CONGESTIVE [None]
  - DIABETES MELLITUS [None]
  - URINARY TRACT INFECTION [None]
